FAERS Safety Report 7110216-1 (Version None)
Quarter: 2010Q4

REPORT INFORMATION
  Report Type: 
  Country: None (occurrence: None)
  Receive Date: 20101117
  Receipt Date: 20101117
  Transmission Date: 20110411
  Serious: Yes (Other)
  Sender: FDA-Public Use
  Company Number: None

PATIENT
  Age: 68 Year
  Sex: Female
  Weight: 74.4806 kg

DRUGS (3)
  1. HYZAAR [Suspect]
     Indication: HYPERTENSION
     Dates: start: 20100520, end: 20100620
  2. HYZAAR [Suspect]
     Indication: HYPERTENSION
     Dates: start: 20100620, end: 20101012
  3. BENICAR [Suspect]
     Dates: start: 20100418, end: 20100421

REACTIONS (8)
  - ARTHRALGIA [None]
  - COUGH [None]
  - DYSPNOEA [None]
  - HEADACHE [None]
  - MUSCLE SPASMS [None]
  - MUSCULAR WEAKNESS [None]
  - NAUSEA [None]
  - VERTIGO [None]
